FAERS Safety Report 6172556-2 (Version None)
Quarter: 2009Q2

REPORT INFORMATION
  Report Type: 
  Country: None (occurrence: None)
  Receive Date: 20090428
  Receipt Date: 20090420
  Transmission Date: 20091009
  Serious: Yes (Hospitalization)
  Sender: FDA-Public Use
  Company Number: 2009004182

PATIENT
  Age: 37 Year
  Sex: Female
  Weight: 85.9 kg

DRUGS (4)
  1. PROVIGIL [Suspect]
     Dosage: 200 MG (200 MG, 1 IN 1 D), ORAL
     Route: 048
     Dates: end: 20090418
  2. EFFEXOR-XR (VENLAFAXINE HYDROCHLORIDE) (TABLETS) [Concomitant]
  3. TRILEPTAL (OXACARBAZEPINE) (TABLETS) [Concomitant]
  4. SYNTHROID (LEVOTHYROXINE SODIUM) (TABLETS) [Concomitant]

REACTIONS (3)
  - METABOLIC ACIDOSIS [None]
  - OVERDOSE [None]
  - RESPIRATORY DISTRESS [None]
